FAERS Safety Report 12457470 (Version 4)
Quarter: 2016Q4

REPORT INFORMATION
  Report Type: Report from Study
  Country: CA (occurrence: CA)
  Receive Date: 20160610
  Receipt Date: 20161117
  Transmission Date: 20170207
  Serious: Yes (Life-Threatening, Hospitalization)
  Sender: FDA-Public Use
  Company Number: CA-HLSUS-2016-CA-000211

PATIENT
  Age: 11 Year
  Sex: Male
  Weight: 62 kg

DRUGS (15)
  1. MELATONIN [Concomitant]
     Active Substance: MELATONIN
     Indication: INSOMNIA
     Dosage: 3-6 MG PRN
  2. OXYBUTYNIN [Concomitant]
     Active Substance: OXYBUTYNIN
  3. PROPRANOLOL [Concomitant]
     Active Substance: PROPRANOLOL\PROPRANOLOL HYDROCHLORIDE
     Indication: TACHYCARDIA
     Dosage: 40 MG BID
     Dates: start: 20150130, end: 20160520
  4. DESMOPRESSIN [Concomitant]
     Active Substance: DESMOPRESSIN
     Dosage: 240 MG AT BEDTIME
  5. FLUOXETINE [Concomitant]
     Active Substance: FLUOXETINE HYDROCHLORIDE
     Indication: ANXIETY
     Dosage: 20 MG
  6. MIRABEGRON [Concomitant]
     Active Substance: MIRABEGRON
     Dosage: 50 MG AT BEDTIME
  7. LANSOPRAZOLE. [Concomitant]
     Active Substance: LANSOPRAZOLE
     Dosage: 30 MG DAILY (FASTAB)
  8. AMANTADINE [Concomitant]
     Active Substance: AMANTADINE
     Dosage: 100 MG BID
  9. INTUNIV [Concomitant]
     Active Substance: GUANFACINE HYDROCHLORIDE
     Indication: ATTENTION DEFICIT/HYPERACTIVITY DISORDER
     Dosage: 1 MG AT SUPPER
     Dates: start: 20150607
  10. PEG [Concomitant]
     Active Substance: POLYETHYLENE GLYCOLS
     Indication: CONSTIPATION
     Dosage: 17 G PRN
     Route: 048
  11. TUMS [Concomitant]
     Active Substance: CALCIUM CARBONATE
     Indication: DYSPEPSIA
     Dosage: 400 MG 4 TIMES DAILY PRN
  12. DICHLORVOS [Concomitant]
  13. CLOZARIL [Suspect]
     Active Substance: CLOZAPINE
     Indication: SCHIZOAFFECTIVE DISORDER
     Dosage: 100 MG BID
     Route: 048
     Dates: start: 20150115, end: 20160520
  14. PAROXETINE. [Concomitant]
     Active Substance: PAROXETINE
     Indication: DEPRESSION
     Dosage: 20 MG DAILY
     Route: 048
     Dates: start: 20150115, end: 20160520
  15. LITHIUM. [Concomitant]
     Active Substance: LITHIUM
     Dosage: 300 MG BID
     Dates: start: 20150115, end: 20160520

REACTIONS (9)
  - Multiple organ dysfunction syndrome [Unknown]
  - Influenza [Recovered/Resolved]
  - Cardio-respiratory arrest [Unknown]
  - Pneumonia [Unknown]
  - Anxiety [Unknown]
  - Vocal cord paralysis [Unknown]
  - Dysphagia [Unknown]
  - Bacterial infection [Unknown]
  - Septic shock [Unknown]

NARRATIVE: CASE EVENT DATE: 20160520
